FAERS Safety Report 9895635 (Version 1)
Quarter: 2014Q1

REPORT INFORMATION
  Report Type: Spontaneous
  Country: US (occurrence: US)
  Receive Date: 20140213
  Receipt Date: 20140213
  Transmission Date: 20141002
  Serious: No
  Sender: FDA-Public Use
  Company Number: US-BRISTOL-MYERS SQUIBB COMPANY-17392028

PATIENT
  Age: 69 Year
  Sex: Male
  Weight: 79 kg

DRUGS (4)
  1. ABATACEPT SUBQ INJECTION 125MG/ML [Suspect]
     Route: 058
  2. DOXYCYCLINE [Concomitant]
     Dosage: CAPS
  3. METHOTREXATE [Concomitant]
     Dosage: TABS
  4. ZOLOFT [Concomitant]
     Dosage: TABS

REACTIONS (1)
  - Drug ineffective [Unknown]
